FAERS Safety Report 21900769 (Version 1)
Quarter: 2023Q1

REPORT INFORMATION
  Report Type: Spontaneous
  Country: US (occurrence: US)
  Receive Date: 20230123
  Receipt Date: 20230123
  Transmission Date: 20230417
  Serious: No
  Sender: FDA-Public Use
  Company Number: US-NOVOPROD-979444

PATIENT
  Sex: Female

DRUGS (1)
  1. OZEMPIC [Suspect]
     Active Substance: SEMAGLUTIDE
     Indication: Type 2 diabetes mellitus
     Dosage: 0.25 MG, QW
     Route: 058
     Dates: start: 202203

REACTIONS (8)
  - Musculoskeletal discomfort [Unknown]
  - Hyperhidrosis [Unknown]
  - Dizziness postural [Unknown]
  - Heart rate increased [Unknown]
  - Decreased appetite [Unknown]
  - Rash [Not Recovered/Not Resolved]
  - Constipation [Unknown]
  - Abdominal pain upper [Recovered/Resolved]

NARRATIVE: CASE EVENT DATE: 20220301
